FAERS Safety Report 9536836 (Version 3)
Quarter: 2013Q4

REPORT INFORMATION
  Report Type: Spontaneous
  Country: GB (occurrence: GB)
  Receive Date: 20130919
  Receipt Date: 20131211
  Transmission Date: 20140711
  Serious: Yes (Hospitalization, Other)
  Sender: FDA-Public Use
  Company Number: GB-PFIZER INC-2013263756

PATIENT
  Age: 78 Year
  Sex: Female

DRUGS (6)
  1. SERTRALINE HCL [Suspect]
     Indication: DEPRESSION
     Dosage: 100 MG, 1X/DAY
     Route: 048
     Dates: end: 201308
  2. SERTRALINE HCL [Suspect]
     Dosage: 150 MG, 1X/DAY
     Route: 048
     Dates: start: 201308, end: 20130827
  3. BACLOFEN [Concomitant]
     Dosage: UNK
  4. ADCAL-D3 [Concomitant]
     Dosage: 1 DF, 2X/DAY
     Route: 048
  5. SIMVASTATIN [Concomitant]
     Dosage: 20 MG, 1X/DAY AT NIGHT
     Route: 048
  6. ZOPICLONE [Concomitant]
     Dosage: 7.5 MG, 1X/DAY AT NIGHT
     Route: 048

REACTIONS (4)
  - Serotonin syndrome [Recovered/Resolved]
  - Fall [Recovered/Resolved]
  - Muscle rigidity [Recovered/Resolved]
  - Muscle contracture [Recovered/Resolved]
